FAERS Safety Report 17316722 (Version 1)
Quarter: 2020Q1

REPORT INFORMATION
  Report Type: Spontaneous
  Country: FR (occurrence: FR)
  Receive Date: 20200124
  Receipt Date: 20200124
  Transmission Date: 20200409
  Serious: Yes (Hospitalization, Other)
  Sender: FDA-Public Use
  Company Number: FR-AFSSAPS-AN20161039

PATIENT
  Age: 78 Year
  Sex: Male
  Weight: 70 kg

DRUGS (12)
  1. PREVISCAN [FLUINDIONE] [Concomitant]
     Active Substance: FLUINDIONE
     Indication: PRODUCT USED FOR UNKNOWN INDICATION
     Dosage: UNK UNK, UNK
     Route: 065
  2. INSPRA [Concomitant]
     Active Substance: EPLERENONE
     Indication: PRODUCT USED FOR UNKNOWN INDICATION
     Dosage: UNK UNK, UNK
     Route: 065
  3. AMIODARONE [Concomitant]
     Active Substance: AMIODARONE
     Indication: PRODUCT USED FOR UNKNOWN INDICATION
     Dosage: 0.5 DF, QD
     Route: 065
  4. AMOXICILLIN. [Suspect]
     Active Substance: AMOXICILLIN
     Indication: TONSILLITIS
     Dosage: UNK UNK, UNK
     Route: 048
     Dates: start: 20160927, end: 20161002
  5. MAXILASE [Suspect]
     Active Substance: PANCRELIPASE
     Indication: TONSILLITIS
     Dosage: UNK
     Route: 048
     Dates: start: 20160927, end: 20161003
  6. SIMVASTATIN. [Concomitant]
     Active Substance: SIMVASTATIN
     Indication: PRODUCT USED FOR UNKNOWN INDICATION
     Dosage: 20 MG, QD
     Route: 065
  7. FLOMAX [Suspect]
     Active Substance: TAMSULOSIN HYDROCHLORIDE
     Indication: TONSILLITIS
     Dosage: UNK
     Route: 048
     Dates: start: 20160927, end: 20161003
  8. RHINOFLUIMUCIL [Suspect]
     Active Substance: ACETYLCYSTEINE\BENZALKONIUM CHLORIDE\TUAMINOHEPTANE SULFATE
     Indication: TONSILLITIS
     Dosage: UNK UNK, UNK
     Route: 045
     Dates: start: 20160929, end: 20161003
  9. SYMBICORT [Concomitant]
     Active Substance: BUDESONIDE\FORMOTEROL FUMARATE DIHYDRATE
     Indication: PRODUCT USED FOR UNKNOWN INDICATION
     Dosage: UNK UNK, UNK
     Route: 065
  10. PERINDOPRIL [Concomitant]
     Active Substance: PERINDOPRIL
     Indication: PRODUCT USED FOR UNKNOWN INDICATION
     Dosage: 1 DF, QD
     Route: 065
  11. AMBROXOL HYDROCHLORIDE [Suspect]
     Active Substance: AMBROXOL HYDROCHLORIDE
     Indication: TONSILLITIS
     Dosage: UNK
     Route: 048
     Dates: start: 20160927, end: 20161003
  12. IXPRIM [Concomitant]
     Active Substance: ACETAMINOPHEN\TRAMADOL HYDROCHLORIDE
     Indication: PRODUCT USED FOR UNKNOWN INDICATION
     Dosage: UNK UNK, UNK
     Route: 065

REACTIONS (10)
  - Product use in unapproved indication [Unknown]
  - Pruritus [Not Recovered/Not Resolved]
  - Hypotension [Unknown]
  - Chest discomfort [Unknown]
  - Rash maculo-papular [Not Recovered/Not Resolved]
  - Blood pressure systolic increased [Unknown]
  - Headache [Unknown]
  - Odynophagia [Unknown]
  - Paraesthesia [Unknown]
  - Prostatitis [Unknown]

NARRATIVE: CASE EVENT DATE: 20160929
